FAERS Safety Report 15330548 (Version 1)
Quarter: 2018Q3

REPORT INFORMATION
  Report Type: Spontaneous
  Country: US (occurrence: US)
  Receive Date: 20180829
  Receipt Date: 20180829
  Transmission Date: 20181010
  Serious: Yes (Hospitalization)
  Sender: FDA-Public Use
  Company Number: US-AKORN PHARMACEUTICALS-2018AKN01052

PATIENT
  Age: 53 Year
  Sex: Female
  Weight: 64.85 kg

DRUGS (4)
  1. MYORISAN [Suspect]
     Active Substance: ISOTRETINOIN
     Indication: ACNE
     Dosage: 40 MG, 1X/DAY
     Dates: start: 20180418, end: 20180611
  2. MYORISAN [Suspect]
     Active Substance: ISOTRETINOIN
     Indication: DERMAL CYST
  3. AMITRIPTYLINE [Concomitant]
     Active Substance: AMITRIPTYLINE
     Dosage: 100 MG, 1X/DAY, ^AT NIGHT^
  4. AMITIZA [Concomitant]
     Active Substance: LUBIPROSTONE
     Dosage: 8 ?G, 2X/DAY

REACTIONS (5)
  - Off label use [Recovered/Resolved]
  - Bipolar disorder [Recovering/Resolving]
  - Insomnia [Recovered/Resolved]
  - Borderline personality disorder [Recovering/Resolving]
  - Headache [Recovered/Resolved]

NARRATIVE: CASE EVENT DATE: 2018
